FAERS Safety Report 7283777-X (Version None)
Quarter: 2011Q1

REPORT INFORMATION
  Report Type: 
  Country: None (occurrence: None)
  Receive Date: 20110209
  Receipt Date: 20110127
  Transmission Date: 20110831
  Serious: Yes (Death)
  Sender: FDA-Public Use
  Company Number: KR-MERCK-1101KOR00048

PATIENT
  Age: 83 Year
  Sex: Female

DRUGS (13)
  1. ZOCOR [Suspect]
     Indication: HYPERLIPIDAEMIA
     Route: 048
     Dates: start: 20101119, end: 20110122
  2. AMLODIPINE CAMSYLATE AND LOSARTAN POTASSIUM [Suspect]
     Indication: HYPERTENSION
     Route: 048
     Dates: start: 20101203, end: 20110122
  3. ISOSORBIDE MONONITRATE [Concomitant]
     Indication: MYOCARDIAL ISCHAEMIA
     Route: 065
     Dates: start: 20101119, end: 20110122
  4. ASPIRIN [Concomitant]
     Route: 065
     Dates: start: 20101119, end: 20110122
  5. SERTRALINE HYDROCHLORIDE [Concomitant]
     Indication: DEPRESSION
     Route: 065
     Dates: start: 20101122, end: 20110122
  6. TRIMETAZIDINE [Concomitant]
     Indication: MYOCARDIAL ISCHAEMIA
     Route: 065
     Dates: start: 20101119, end: 20110122
  7. FUROSEMIDE [Concomitant]
     Indication: HYPERTENSION
     Route: 065
     Dates: start: 20101119, end: 20110122
  8. LEVODOPA [Concomitant]
     Indication: PARKINSONISM
     Route: 065
     Dates: start: 20101119, end: 20110122
  9. ALPRAZOLAM [Concomitant]
     Indication: DEPRESSION
     Route: 065
     Dates: start: 20101122, end: 20110122
  10. GLIMEPIRIDE [Concomitant]
     Indication: DIABETES MELLITUS
     Route: 065
     Dates: start: 20101119, end: 20101215
  11. DONEPEZIL HYDROCHLORIDE [Concomitant]
     Indication: DEMENTIA
     Route: 065
     Dates: start: 20101119, end: 20110122
  12. NICORANDIL [Concomitant]
     Indication: MYOCARDIAL ISCHAEMIA
     Route: 065
     Dates: start: 20101119, end: 20110122
  13. CLONAZEPAM [Concomitant]
     Indication: DEPRESSION
     Route: 065
     Dates: start: 20101122, end: 20110122

REACTIONS (3)
  - SEPTIC SHOCK [None]
  - URINARY TRACT INFECTION [None]
  - HYPOTENSION [None]
